FAERS Safety Report 19358497 (Version 1)
Quarter: 2021Q2

REPORT INFORMATION
  Report Type: Spontaneous
  Country: DE (occurrence: DE)
  Receive Date: 20210602
  Receipt Date: 20210602
  Transmission Date: 20210717
  Serious: Yes (Other)
  Sender: FDA-Public Use
  Company Number: DE-SUN PHARMACEUTICAL INDUSTRIES LTD-2021RR-298928

PATIENT
  Age: 44 Year
  Sex: Female
  Weight: 63 kg

DRUGS (4)
  1. PROTHYRID [Concomitant]
     Active Substance: LEVOTHYROXINE SODIUM
     Indication: AUTOIMMUNE THYROIDITIS
     Dosage: 100 [MICROG/D ] / 10 [MICROG/D ] ()
     Route: 048
     Dates: start: 20200518, end: 20201030
  2. DORMICUM [Concomitant]
     Indication: SURGERY
     Dosage: ONCE ()
     Route: 042
  3. CLOPIDOGREL [Suspect]
     Active Substance: CLOPIDOGREL BISULFATE
     Indication: ATRIAL SEPTAL DEFECT
     Dosage: 75 [MG/D ]
     Route: 048
     Dates: start: 20200618, end: 20201030
  4. ASPIRIN. [Concomitant]
     Active Substance: ASPIRIN
     Indication: THROMBOSIS PROPHYLAXIS
     Dosage: 100 [MG/D ] ()
     Route: 048
     Dates: start: 20200518, end: 20201030

REACTIONS (2)
  - Exposure during pregnancy [Unknown]
  - Foetal death [Recovered/Resolved]
